FAERS Safety Report 17210110 (Version 1)
Quarter: 2019Q4

REPORT INFORMATION
  Report Type: Spontaneous
  Country: US (occurrence: US)
  Receive Date: 20191227
  Receipt Date: 20191227
  Transmission Date: 20200122
  Serious: No
  Sender: FDA-Public Use
  Company Number: US-ASTRAZENECA-2019SF83483

PATIENT
  Age: 41 Year
  Sex: Female

DRUGS (1)
  1. NEXIUM 24HR [Suspect]
     Active Substance: ESOMEPRAZOLE MAGNESIUM
     Indication: PANCREATITIS ACUTE
     Dosage: UNKNOWN DOSAGE
     Route: 048
     Dates: start: 2011

REACTIONS (5)
  - Product physical issue [Unknown]
  - Product use issue [Unknown]
  - Off label use [Not Recovered/Not Resolved]
  - Drug dependence [Unknown]
  - Intentional product misuse [Unknown]
